FAERS Safety Report 12268704 (Version 1)
Quarter: 2016Q2

REPORT INFORMATION
  Report Type: Spontaneous
  Country: US (occurrence: US)
  Receive Date: 20160414
  Receipt Date: 20160414
  Transmission Date: 20160815
  Serious: Yes (Hospitalization, Other)
  Sender: FDA-Public Use
  Company Number: US-BAYER-2016-066219

PATIENT
  Age: 42 Year
  Sex: Female

DRUGS (1)
  1. BETASERON [Suspect]
     Active Substance: INTERFERON BETA-1B
     Indication: MULTIPLE SCLEROSIS
     Dosage: 0.25 MG, QOD
     Dates: start: 2013

REACTIONS (6)
  - Gait disturbance [None]
  - Vomiting [None]
  - Fall [None]
  - Foot fracture [None]
  - Inappropriate affect [None]
  - Cholecystectomy [None]

NARRATIVE: CASE EVENT DATE: 2015
